FAERS Safety Report 25454703 (Version 4)
Quarter: 2025Q3

REPORT INFORMATION
  Report Type: Report from Study
  Country: US (occurrence: US)
  Receive Date: 20250619
  Receipt Date: 20250912
  Transmission Date: 20251020
  Serious: No
  Sender: SUNOVION
  Company Number: US-SMPA-2025SPA006645AA

PATIENT
  Age: 66 Year
  Sex: Male

DRUGS (16)
  1. ORGOVYX [Suspect]
     Active Substance: RELUGOLIX
     Indication: Prostate cancer
     Dosage: 360 MG, SINGLE
     Route: 048
     Dates: start: 20250509, end: 20250509
  2. ORGOVYX [Suspect]
     Active Substance: RELUGOLIX
     Dosage: 120 MG, QD
     Route: 048
     Dates: start: 20250510
  3. LISINOPRIL [Concomitant]
     Active Substance: LISINOPRIL
  4. METOPROLOL [Concomitant]
     Active Substance: METOPROLOL
  5. PANTOPRAZOLE [Concomitant]
     Active Substance: PANTOPRAZOLE
  6. SILDENAFIL [Concomitant]
     Active Substance: SILDENAFIL
  7. TADALAFIL [Concomitant]
     Active Substance: TADALAFIL
  8. TYLENOL [Concomitant]
     Active Substance: ACETAMINOPHEN
  9. ASPIRIN [Concomitant]
     Active Substance: ASPIRIN
  10. ATIVAN [Concomitant]
     Active Substance: LORAZEPAM
  11. ATORVASTATIN [Concomitant]
     Active Substance: ATORVASTATIN
  12. CALCIUM [Concomitant]
     Active Substance: CALCIUM
  13. CITRUCEL [Concomitant]
     Active Substance: METHYLCELLULOSE (4000 CPS)
  14. GAS-X [Concomitant]
     Active Substance: DIMETHICONE
  15. IMODIUM A-D [Concomitant]
     Active Substance: LOPERAMIDE HYDROCHLORIDE
  16. CALCIUM CITRATE\CHOLECALCIFEROL [Concomitant]
     Active Substance: CALCIUM CITRATE\CHOLECALCIFEROL

REACTIONS (11)
  - Brain fog [Unknown]
  - Disturbance in attention [Unknown]
  - Nausea [Unknown]
  - Middle insomnia [Unknown]
  - Hot flush [Not Recovered/Not Resolved]
  - Fatigue [Unknown]
  - Musculoskeletal pain [Unknown]
  - Headache [Unknown]
  - Diarrhoea [Unknown]
  - Weight increased [Unknown]
  - Product dose omission issue [Recovered/Resolved]
